FAERS Safety Report 8799092 (Version 2)
Quarter: 2012Q4

REPORT INFORMATION
  Report Type: 
  Country: US (occurrence: US)
  Receive Date: 20120914
  Receipt Date: 20121218
  Transmission Date: 20130627
  Serious: Yes (Hospitalization, Other)
  Sender: FDA-Public Use
  Company Number: 2012P1056090

PATIENT
  Age: 68 Year
  Sex: Male
  Weight: 123.38 kg

DRUGS (15)
  1. WARFARIN SODIUM [Suspect]
     Dates: start: 2011
  2. WARFARIN SODIUM [Suspect]
     Dates: start: 2011
  3. WARFARIN SODIUM [Suspect]
     Route: 048
     Dates: start: 201112
  4. Z-PAK [Suspect]
     Indication: NASOPHARYNGITIS
     Dates: start: 201111
  5. VITAMIN E [Suspect]
     Dates: end: 2011
  6. SULFASALAZINE [Concomitant]
  7. MULTIVITAMIN [Concomitant]
  8. METOPROLOL [Concomitant]
  9. LISINOPRIL [Concomitant]
  10. PANTAPRAZOLE [Concomitant]
  11. POTASSIUM CHLORIDE [Concomitant]
  12. FUROSEMIDE [Concomitant]
  13. MAGNESIUM [Concomitant]
  14. SIMVASTATIN [Concomitant]
  15. FERROUS SULFATE [Concomitant]

REACTIONS (11)
  - International normalised ratio increased [Recovered/Resolved]
  - Haemorrhage [Unknown]
  - Diarrhoea [Not Recovered/Not Resolved]
  - Vomiting [Not Recovered/Not Resolved]
  - Weight decreased [Not Recovered/Not Resolved]
  - Nasopharyngitis [Unknown]
  - Hypophagia [Not Recovered/Not Resolved]
  - Lactose intolerance [Not Recovered/Not Resolved]
  - Product substitution issue [Not Recovered/Not Resolved]
  - Ecchymosis [Unknown]
  - Haematuria [Unknown]
